FAERS Safety Report 24610476 (Version 5)
Quarter: 2025Q1

REPORT INFORMATION
  Report Type: Report from Study
  Country: US (occurrence: US)
  Receive Date: 20241112
  Receipt Date: 20250205
  Transmission Date: 20250408
  Serious: No
  Sender: SUNOVION
  Company Number: US-SUMITOMO PHARMA SWITZERLAND GMBH-2024SPA004734

PATIENT

DRUGS (1)
  1. ORGOVYX [Suspect]
     Active Substance: RELUGOLIX
     Indication: Prostate cancer
     Dosage: 120 MG, QD
     Route: 048
     Dates: start: 20241027

REACTIONS (9)
  - Increased appetite [Unknown]
  - Muscular weakness [Unknown]
  - Lip dry [Unknown]
  - Feeling hot [Unknown]
  - Arthralgia [Unknown]
  - Hot flush [Unknown]
  - Blood triglycerides increased [Unknown]
  - Myalgia [Unknown]
  - Incorrect dose administered [Unknown]
